FAERS Safety Report 8499625 (Version 2)
Quarter: 2014Q1

REPORT INFORMATION
  Report Type: Spontaneous
  Country: US (occurrence: US)
  Receive Date: 20120409
  Receipt Date: 20140303
  Transmission Date: 20141002
  Serious: Yes (Disabling, Other)
  Sender: FDA-Public Use
  Company Number: US-CELGENEUS-163-20785-12040173

PATIENT
  Sex: Female
  Weight: 52.21 kg

DRUGS (3)
  1. THALOMID [Suspect]
     Indication: PLASMA CELL MYELOMA
     Dosage: 200 MILLIGRAM
     Route: 048
     Dates: start: 200810
  2. THALOMID [Suspect]
     Dosage: 100 MILLIGRAM
     Route: 048
     Dates: start: 200912, end: 2012
  3. DECADRON [Concomitant]
     Indication: PRODUCT USED FOR UNKNOWN INDICATION
     Route: 065

REACTIONS (6)
  - Oesophageal achalasia [Not Recovered/Not Resolved]
  - Aspiration [Not Recovered/Not Resolved]
  - Arthropathy [Not Recovered/Not Resolved]
  - Pneumonia [Unknown]
  - Neuropathy peripheral [Not Recovered/Not Resolved]
  - Muscular weakness [Not Recovered/Not Resolved]
